FAERS Safety Report 7133960-9 (Version None)
Quarter: 2010Q4

REPORT INFORMATION
  Report Type: 
  Country: None (occurrence: None)
  Receive Date: 20101203
  Receipt Date: 20101201
  Transmission Date: 20110411
  Serious: Yes (Death)
  Sender: FDA-Public Use
  Company Number: JP-EISAI INC.-E2020-08091-SPO-JP

PATIENT
  Age: 93 Year
  Weight: 37 kg

DRUGS (10)
  1. ARICEPT [Suspect]
     Indication: DEMENTIA ALZHEIMER'S TYPE
     Route: 048
     Dates: start: 20101014
  2. BLOPRESS [Concomitant]
     Indication: HYPERTENSION
     Route: 048
  3. EVISTA [Concomitant]
     Route: 048
  4. AMLODIPINE [Concomitant]
     Indication: HYPERTENSION
     Route: 048
  5. TULOBUTEROL [Concomitant]
  6. ROHYPNOL [Concomitant]
     Route: 048
  7. LENDORMIN [Concomitant]
     Indication: INSOMNIA
     Route: 048
  8. ADOAIR [Concomitant]
     Route: 048
  9. YOKU-KAN-SAN [Concomitant]
     Indication: HALLUCINATION, VISUAL
     Route: 048
     Dates: start: 20100902
  10. PREDNISOLONE [Concomitant]
     Route: 048

REACTIONS (1)
  - COMPLETED SUICIDE [None]
